FAERS Safety Report 5321859-X (Version None)
Quarter: 2007Q2

REPORT INFORMATION
  Report Type: 
  Country: None (occurrence: None)
  Receive Date: 20070510
  Receipt Date: 20070502
  Transmission Date: 20071010
  Serious: Yes (Disabling, Other)
  Sender: FDA-Public Use
  Company Number: GB-ABBOTT-07P-167-0367014-00

PATIENT
  Age: 25 Year
  Sex: Female
  Weight: 117 kg

DRUGS (2)
  1. SIBUTRAMINE [Suspect]
     Indication: WEIGHT CONTROL
     Dates: start: 20070205, end: 20070302
  2. DESOGESTREL [Concomitant]
     Indication: CONTRACEPTION

REACTIONS (2)
  - DEPRESSION [None]
  - EMOTIONAL DISORDER [None]
